FAERS Safety Report 11217348 (Version 3)
Quarter: 2015Q3

REPORT INFORMATION
  Report Type: Report from Study
  Country: BR (occurrence: BR)
  Receive Date: 20150625
  Receipt Date: 20150723
  Transmission Date: 20151125
  Serious: Yes (Hospitalization)
  Sender: FDA-Public Use
  Company Number: BR-ROCHE-1598527

PATIENT
  Sex: Female
  Weight: 59 kg

DRUGS (8)
  1. PREDNISONE. [Concomitant]
     Active Substance: PREDNISONE
     Indication: ASTHMA
     Route: 065
  2. AEROLIN [Concomitant]
     Active Substance: ALBUTEROL
  3. XOLAIR [Suspect]
     Active Substance: OMALIZUMAB
     Indication: ASTHMA
     Dosage: 1 AMPOULE
     Route: 058
     Dates: start: 201411, end: 20150120
  4. XOLAIR [Suspect]
     Active Substance: OMALIZUMAB
     Indication: EMPHYSEMA
  5. AZITHROMYCIN [Concomitant]
     Active Substance: AZITHROMYCIN ANHYDROUS
     Route: 065
     Dates: start: 2012
  6. ALENIA (BRAZIL) [Concomitant]
     Active Substance: BUDESONIDE\FORMOTEROL FUMARATE
     Route: 065
  7. PREDNISONE. [Concomitant]
     Active Substance: PREDNISONE
     Indication: EMPHYSEMA
  8. LORATADINE. [Concomitant]
     Active Substance: LORATADINE
     Indication: HYPERSENSITIVITY
     Route: 065
     Dates: start: 2012

REACTIONS (6)
  - Asthmatic crisis [Recovering/Resolving]
  - Tremor [Not Recovered/Not Resolved]
  - Asthma [Recovered/Resolved]
  - Off label use [Unknown]
  - Feeling abnormal [Not Recovered/Not Resolved]
  - Lung infection [Recovering/Resolving]
